FAERS Safety Report 10082414 (Version 2)
Quarter: 2014Q2

REPORT INFORMATION
  Report Type: Report from Study
  Country: US (occurrence: US)
  Receive Date: 20140416
  Receipt Date: 20140613
  Transmission Date: 20141212
  Serious: Yes (Other)
  Sender: FDA-Public Use
  Company Number: PHEH2014US007460

PATIENT
  Sex: Male

DRUGS (2)
  1. TOBI [Suspect]
     Indication: OBSTRUCTIVE AIRWAYS DISORDER
     Dosage: 300 MG, BID (EVERY OTHER MONTH)
     Route: 055
  2. TOBI [Suspect]
     Dosage: 300 MG, BID (FOR TWO CONSECUTIVE MONTHS)
     Route: 055

REACTIONS (1)
  - Pneumonia [Not Recovered/Not Resolved]
